FAERS Safety Report 6075630-4 (Version None)
Quarter: 2009Q1

REPORT INFORMATION
  Report Type: 
  Country: None (occurrence: None)
  Receive Date: 20090212
  Receipt Date: 20090204
  Transmission Date: 20090719
  Serious: Yes (Other)
  Sender: FDA-Public Use
  Company Number: BR-PFIZER INC-2009164948

PATIENT

DRUGS (1)
  1. CAVERJECT [Suspect]
     Dosage: UNK
     Dates: start: 20070101

REACTIONS (2)
  - DRUG INEFFECTIVE [None]
  - VASCULAR OPERATION [None]
